FAERS Safety Report 6996869-7 (Version None)
Quarter: 2010Q3

REPORT INFORMATION
  Report Type: 
  Country: None (occurrence: None)
  Receive Date: 20100918
  Receipt Date: 20090810
  Transmission Date: 20110219
  Serious: No
  Sender: FDA-Public Use
  Company Number: US-WYE-H10538109

PATIENT
  Sex: Female
  Weight: 49.49 kg

DRUGS (5)
  1. EFFEXOR XR [Suspect]
     Indication: DEPRESSION
     Dosage: 75 MG EVERY 1 TOT
     Route: 048
     Dates: start: 20090601, end: 20090601
  2. EFFEXOR XR [Suspect]
     Route: 048
     Dates: start: 20090601, end: 20090807
  3. EFFEXOR XR [Suspect]
     Route: 048
     Dates: start: 20090808, end: 20090809
  4. EFFEXOR XR [Suspect]
     Route: 048
     Dates: start: 20090810
  5. SYNTHROID [Concomitant]

REACTIONS (12)
  - ANXIETY [None]
  - CONFUSIONAL AROUSAL [None]
  - DIZZINESS [None]
  - DRUG WITHDRAWAL SYNDROME [None]
  - FATIGUE [None]
  - HALLUCINATION [None]
  - HEADACHE [None]
  - LETHARGY [None]
  - MEMORY IMPAIRMENT [None]
  - PALPITATIONS [None]
  - SOMNOLENCE [None]
  - TREMOR [None]
